FAERS Safety Report 5559136-4 (Version None)
Quarter: 2007Q4

REPORT INFORMATION
  Report Type: 
  Country: None (occurrence: None)
  Receive Date: 20071130
  Receipt Date: 20070815
  Transmission Date: 20080405
  Serious: No
  Sender: FDA-Public Use
  Company Number: US200708003644

PATIENT
  Sex: Female

DRUGS (2)
  1. BYETTA [Suspect]
     Indication: WEIGHT CONTROL
     Dosage: 5 UG, DAILY (1/D), SUBCUTANEOUS
     Route: 058
  2. EXENATIDE 5MCG PEN, DISPOSABLE DEVICE (EXENATIDE PEN (5MCG)) PEN,DISPO [Concomitant]

REACTIONS (3)
  - ABDOMINAL DISTENSION [None]
  - ALOPECIA [None]
  - WEIGHT DECREASED [None]
